FAERS Safety Report 25347479 (Version 1)
Quarter: 2025Q2

REPORT INFORMATION
  Report Type: Spontaneous
  Country: US (occurrence: None)
  Receive Date: 20250522
  Receipt Date: 20250522
  Transmission Date: 20250716
  Serious: Yes (Hospitalization)
  Sender: FDA-CTU
  Company Number: None

PATIENT
  Sex: Female

DRUGS (11)
  1. DIPHENHYDRAMINE [Suspect]
     Active Substance: DIPHENHYDRAMINE
     Indication: Systemic lupus erythematosus
     Dosage: FREQUENCY : TWICE A DAY;?
     Dates: start: 20250516
  2. ALBUTEROL AER HFA [Concomitant]
  3. ARMOUR THYRO TAB 90MG [Concomitant]
  4. AZELASTINE SPR 0.1% [Concomitant]
  5. CLONAZEPAM TAB 0.5MG [Concomitant]
  6. CLOTRIM/BETA CRE 1-0.05% [Concomitant]
  7. CYANOCOBALAM INJ [Concomitant]
  8. DICLOFENAC SOL [Concomitant]
  9. FIORICET CAP [Concomitant]
  10. FLONASE ALGY SPR 50MCG [Concomitant]
  11. FORTEO INJ 600/2.4 [Concomitant]

REACTIONS (1)
  - Cellulitis [None]
